FAERS Safety Report 7177255-6 (Version None)
Quarter: 2010Q4

REPORT INFORMATION
  Report Type: 
  Country: None (occurrence: None)
  Receive Date: 20101220
  Receipt Date: 20101216
  Transmission Date: 20110411
  Serious: Yes (Hospitalization)
  Sender: FDA-Public Use
  Company Number: FR-ROCHE-748836

PATIENT
  Age: 76 Year
  Sex: Female

DRUGS (16)
  1. ROCEPHIN [Suspect]
     Dosage: FORM: POWDER FOR INJECTABLE SOLUTION
     Route: 065
     Dates: start: 20100921, end: 20100922
  2. ZYLORIC [Suspect]
     Route: 048
  3. BETASERC [Suspect]
     Route: 048
     Dates: start: 20100915
  4. VOGALENE LYOC [Suspect]
     Dosage: FORM: ORAL LYOPHILISAT
     Route: 048
     Dates: start: 20100915
  5. NOVONORM [Suspect]
     Route: 048
  6. TANGANIL [Suspect]
     Route: 048
     Dates: start: 20100915
  7. FOZITEC [Suspect]
     Route: 048
  8. VASTAREL [Suspect]
     Dosage: FORM: MODIFIED RELEASE COATED TABLET
     Route: 048
  9. TOPALGIC LP [Suspect]
     Dosage: PROLONGED RELEASE TABLET
     Route: 048
  10. FORLAX [Concomitant]
  11. LANTUS [Concomitant]
  12. LEVOTHYROX [Concomitant]
     Dosage: DIVISIBLE TABLET
  13. KARDEGIC [Concomitant]
     Route: 048
  14. ZOLPIDEM [Concomitant]
     Route: 048
  15. PARACETAMOL [Concomitant]
  16. DICLOFENAC [Concomitant]
     Route: 061

REACTIONS (1)
  - DRUG RASH WITH EOSINOPHILIA AND SYSTEMIC SYMPTOMS [None]
